FAERS Safety Report 14319198 (Version 1)
Quarter: 2017Q4

REPORT INFORMATION
  Report Type: Spontaneous
  Country: US (occurrence: US)
  Receive Date: 20171222
  Receipt Date: 20171222
  Transmission Date: 20180321
  Serious: Yes (Hospitalization)
  Sender: FDA-Public Use
  Company Number: US-SA-2017SA254106

PATIENT
  Age: 55 Year
  Sex: Female

DRUGS (6)
  1. LANTUS SOLOSTAR [Suspect]
     Active Substance: INSULIN GLARGINE
     Indication: TYPE 2 DIABETES MELLITUS
     Dosage: DOSE:100 UNIT(S)
     Route: 051
     Dates: start: 2012
  2. SOLOSTAR [Suspect]
     Active Substance: DEVICE
     Dates: start: 2012
  3. LANTUS SOLOSTAR [Suspect]
     Active Substance: INSULIN GLARGINE
     Indication: TYPE 2 DIABETES MELLITUS
     Dosage: DOSE:100 UNIT(S)
     Route: 051
     Dates: start: 2012
  4. SOLOSTAR [Suspect]
     Active Substance: DEVICE
     Dates: start: 2012
  5. LANTUS SOLOSTAR [Suspect]
     Active Substance: INSULIN GLARGINE
     Indication: TYPE 2 DIABETES MELLITUS
     Dosage: DOSE:100 UNIT(S)
     Route: 051
     Dates: start: 2012
  6. SOLOSTAR [Suspect]
     Active Substance: DEVICE
     Dates: start: 2012

REACTIONS (1)
  - Nephrolithiasis [Recovering/Resolving]
